FAERS Safety Report 5316998-3 (Version None)
Quarter: 2007Q2

REPORT INFORMATION
  Report Type: 
  Country: None (occurrence: None)
  Receive Date: 20070504
  Receipt Date: 20070424
  Transmission Date: 20071010
  Serious: Yes (Other)
  Sender: FDA-Public Use
  Company Number: US-PFIZER INC-2007034524

PATIENT
  Sex: Female

DRUGS (5)
  1. CHANTIX [Suspect]
     Indication: SMOKING CESSATION THERAPY
     Dates: start: 20070331, end: 20070421
  2. NEXIUM [Concomitant]
  3. OGEN [Concomitant]
  4. MECLIZINE [Concomitant]
  5. CIPRODEX [Concomitant]

REACTIONS (5)
  - AGEUSIA [None]
  - DYSGEUSIA [None]
  - EAR INFECTION [None]
  - MALAISE [None]
  - NAUSEA [None]
